FAERS Safety Report 5405060-7 (Version None)
Quarter: 2007Q3

REPORT INFORMATION
  Report Type: 
  Country: None (occurrence: None)
  Receive Date: 20070803
  Receipt Date: 20070726
  Transmission Date: 20080115
  Serious: Yes (Other)
  Sender: FDA-Public Use
  Company Number: US-AMGEN-US235872

PATIENT
  Sex: Male

DRUGS (4)
  1. ARANESP [Suspect]
     Indication: ANAEMIA OF MALIGNANT DISEASE
     Route: 058
     Dates: start: 20070101
  2. VITAMIN B-12 [Concomitant]
  3. UNSPECIFIED ANTINEOPLASTIC AGENT [Concomitant]
  4. RADIATION THERAPY [Concomitant]

REACTIONS (4)
  - DRUG INEFFECTIVE [None]
  - DYSPLASIA [None]
  - MALNUTRITION [None]
  - PANCYTOPENIA [None]
